FAERS Safety Report 10370932 (Version 1)
Quarter: 2014Q1

REPORT INFORMATION
  Report Type: Spontaneous
  Country: US (occurrence: None)
  Receive Date: 20140306
  Receipt Date: 20140306
  Transmission Date: 20141002
  Serious: Yes (Other)
  Sender: FDA-Public Use
  Company Number: 163-21880-13080746

PATIENT
  Age: 81 Year
  Sex: Female
  Weight: 75.3 kg

DRUGS (14)
  1. REVLIMID (LENALIDOMIDE) (10 MILLIGRAM, CAPSULES) [Suspect]
     Indication: PLASMA CELL MYELOMA
     Route: 048
     Dates: start: 201112
  2. DETROL (TOLTERODINE L-TARTRATE) (UNKNOWN) [Concomitant]
  3. DEXAMETHASONE (DEXAMETHASONE) (UNKNOWN) [Concomitant]
  4. HYDROCODONE/APAP (VICODIN) (UNKNOWN) [Concomitant]
  5. KLOR-CON (POTASSIUM CHLORIDE) (UNKNOWN) [Concomitant]
  6. LASIX (FUROSEMIDE) (UNKNOWN) [Concomitant]
  7. LEVOTHYROXINE (LEVOTHYROXINE) (UNKNOWN) [Concomitant]
  8. LIPITOR (ATORVASTATIN) (UNKNOWN) [Concomitant]
  9. MULTIVITAMINS (MULTIVITAMINS) (UNKNOWN) [Concomitant]
  10. PREVACID (LANSOPRAZOLE) (UNKNOWN) [Concomitant]
  11. PRILOSEC (OMEPRAZOLE) (UNKNOWN) [Concomitant]
  12. VITAMIN E (TOCOPHEROL) (UNKNOWN) [Concomitant]
  13. ZOLOFT (SERTRALINE HYDROCHLORIDE) (UNKNOWN) [Concomitant]
  14. ZOMETA (ZOLEDRONIC ACID) (UNKNOWN) [Concomitant]

REACTIONS (1)
  - Platelet count decreased [None]
